FAERS Safety Report 4285290-0 (Version None)
Quarter: 2004Q1

REPORT INFORMATION
  Report Type: 
  Country: None (occurrence: None)
  Receive Date: 20040202
  Receipt Date: 20040119
  Transmission Date: 20041129
  Serious: Yes (Hospitalization)
  Sender: FDA-Public Use
  Company Number: 2004003879

PATIENT
  Age: 60 Year
  Sex: Male

DRUGS (6)
  1. DIFLUCAN INJECTION (IFLUCONAZOLE) [Suspect]
     Indication: MENINGITIS CRYPTOCOCCAL
     Dosage: SEE IMAGE
     Dates: start: 20031030, end: 20031108
  2. DIFLUCAN INJECTION (IFLUCONAZOLE) [Suspect]
     Indication: MENINGITIS CRYPTOCOCCAL
     Dosage: SEE IMAGE
     Dates: start: 20031111, end: 20031115
  3. CEFTRIAXONE [Suspect]
     Indication: MENINGITIS
     Dosage: 4 GRAM (DAILY), INTRAVENOUS
     Route: 042
     Dates: start: 20031030, end: 20031110
  4. METOCLOPRAMIDE HYDROCHLORIDE [Suspect]
     Indication: NAUSEA
     Dosage: 30 MG (DAILY),  INTRAVENOUS
     Route: 042
     Dates: start: 20031030, end: 20031115
  5. PARACETAMOL (PARACETAMOL) [Suspect]
     Indication: PYREXIA
     Dosage: 4 GRAM (DAILY), INTRAVENOUS
     Route: 042
  6. KETOROLAC TROMETHAMINE [Suspect]
     Indication: PYREXIA
     Dosage: 60 MG (DAILY), INTRAVENOUS
     Route: 042
     Dates: start: 20031030, end: 20031030

REACTIONS (5)
  - AGRANULOCYTOSIS [None]
  - ASTHENIA [None]
  - CD4 LYMPHOCYTES DECREASED [None]
  - NEUTROPENIA [None]
  - PYREXIA [None]
